FAERS Safety Report 17947276 (Version 1)
Quarter: 2020Q2

REPORT INFORMATION
  Report Type: Report from Study
  Country: AU (occurrence: AU)
  Receive Date: 20200625
  Receipt Date: 20200625
  Transmission Date: 20200714
  Serious: No
  Sender: FDA-Public Use
  Company Number: AU-TOLMAR, INC.-20AU021663

PATIENT
  Sex: Male

DRUGS (1)
  1. ELIGARD [Suspect]
     Active Substance: LEUPROLIDE ACETATE
     Indication: PROSTATE CANCER
     Dosage: 45 MG, Q 6 MONTH
     Route: 058
     Dates: start: 20190605

REACTIONS (5)
  - Contusion [Not Recovered/Not Resolved]
  - Scab [Not Recovered/Not Resolved]
  - Fall [Not Recovered/Not Resolved]
  - Eye contusion [Not Recovered/Not Resolved]
  - Skin abrasion [Not Recovered/Not Resolved]
